FAERS Safety Report 24688928 (Version 2)
Quarter: 2025Q3

REPORT INFORMATION
  Report Type: Spontaneous
  Country: EU (occurrence: EU)
  Receive Date: 20241203
  Receipt Date: 20250802
  Transmission Date: 20251020
  Serious: Yes (Other)
  Sender: ALEXION PHARMACEUTICALS
  Company Number: None

PATIENT
  Age: 86 Year
  Sex: Male
  Weight: 81 kg

DRUGS (14)
  1. DAPAGLIFLOZIN [Suspect]
     Active Substance: DAPAGLIFLOZIN
     Indication: Type 2 diabetes mellitus
  2. Agiolax [Concomitant]
     Indication: Constipation
  3. Magnesia cinfa [Concomitant]
     Indication: Constipation
  4. LINAGLIPTIN [Concomitant]
     Active Substance: LINAGLIPTIN
     Indication: Type 2 diabetes mellitus
  5. METFORMIN HYDROCHLORIDE [Concomitant]
     Active Substance: METFORMIN HYDROCHLORIDE
     Indication: Type 2 diabetes mellitus
  6. HYDROCHLOROTHIAZIDE\LOSARTAN POTASSIUM [Concomitant]
     Active Substance: HYDROCHLOROTHIAZIDE\LOSARTAN POTASSIUM
     Indication: Essential hypertension
  7. ATENOLOL [Concomitant]
     Active Substance: ATENOLOL
     Indication: Essential hypertension
  8. ASPIRIN [Concomitant]
     Active Substance: ASPIRIN
     Indication: Cerebral artery occlusion
  9. TAMSULOSIN HYDROCHLORIDE [Concomitant]
     Active Substance: TAMSULOSIN HYDROCHLORIDE
     Indication: Benign prostatic hyperplasia
  10. ALLOPURINOL [Concomitant]
     Active Substance: ALLOPURINOL
     Indication: Gout
  11. Clovate [Concomitant]
     Indication: Neurodermatitis
  12. ELTROMBOPAG OLAMINE [Concomitant]
     Active Substance: ELTROMBOPAG OLAMINE
     Indication: Thrombocytopenia
  13. OMEPRAZOLE [Concomitant]
     Active Substance: OMEPRAZOLE
  14. ACETAMINOPHEN [Concomitant]
     Active Substance: ACETAMINOPHEN
     Indication: Pain

REACTIONS (2)
  - Balanoposthitis [Recovering/Resolving]
  - Skin candida [Recovering/Resolving]

NARRATIVE: CASE EVENT DATE: 20241020
